FAERS Safety Report 8020565-0 (Version None)
Quarter: 2012Q1

REPORT INFORMATION
  Report Type: 
  Country: None (occurrence: None)
  Receive Date: 20120103
  Receipt Date: 20111222
  Transmission Date: 20120608
  Serious: Yes (Disabling, Other)
  Sender: FDA-Public Use
  Company Number: GB-MERCK-1110USA01546

PATIENT
  Age: 80 Year
  Sex: Male

DRUGS (9)
  1. GONADORELIN INJ [Concomitant]
     Route: 065
  2. ALBUTEROL [Concomitant]
     Indication: CHRONIC OBSTRUCTIVE PULMONARY DISEASE
     Route: 065
  3. SALMETEROL [Concomitant]
     Indication: CHRONIC OBSTRUCTIVE PULMONARY DISEASE
     Route: 065
  4. MOVIPREP [Concomitant]
     Route: 065
  5. DECADRON [Suspect]
     Indication: DECREASED APPETITE
     Route: 048
     Dates: start: 20110930, end: 20111001
  6. DECADRON [Suspect]
     Indication: ASTHENIA
     Route: 048
     Dates: start: 20110930, end: 20111001
  7. DECADRON [Suspect]
     Route: 048
     Dates: start: 20111001, end: 20111001
  8. DECADRON [Suspect]
     Route: 048
     Dates: start: 20111001, end: 20111001
  9. MS CONTIN [Concomitant]
     Route: 065

REACTIONS (1)
  - DYSPNOEA [None]
